FAERS Safety Report 18083998 (Version 2)
Quarter: 2020Q3

REPORT INFORMATION
  Report Type: Spontaneous
  Country: DE (occurrence: DE)
  Receive Date: 20200728
  Receipt Date: 20200807
  Transmission Date: 20201103
  Serious: Yes (Other)
  Sender: FDA-Public Use
  Company Number: NVSC2020DE210365

PATIENT
  Age: 81 Year
  Sex: Male

DRUGS (11)
  1. DEXAMETHASONE. [Suspect]
     Active Substance: DEXAMETHASONE
     Indication: PLASMA CELL MYELOMA
     Dosage: UNK, TRIPLE THERAPY
     Route: 037
  2. CYTARABINE. [Suspect]
     Active Substance: CYTARABINE
     Indication: PLASMA CELL MYELOMA
     Dosage: UNK, TRIPLE THERAPY AND AS AGE?ADJUSTED SYSTEMIC CHEMOTHERAPY
     Route: 037
  3. METHOTREXATE. [Suspect]
     Active Substance: METHOTREXATE
     Indication: PLASMA CELL MYELOMA
     Dosage: UNK, TRIPLE THERAPY
     Route: 037
  4. THIOTEPA. [Suspect]
     Active Substance: THIOTEPA
     Indication: PLASMA CELL MYELOMA
     Dosage: UNK, AGE?ADJUSTED SYSTEMIC CHEMOTHERAPY
     Route: 065
  5. BORTEZOMIB. [Suspect]
     Active Substance: BORTEZOMIB
     Indication: PLASMA CELL MYELOMA
     Dosage: UNK, NINE CYCLES OF VMP CHEMOTHERAPY
     Route: 065
  6. MELPHALAN. [Suspect]
     Active Substance: MELPHALAN
     Indication: PLASMA CELL MYELOMA
     Dosage: UNK, NINE CYCLES OF VMP CHEMOTHERAPY
     Route: 065
  7. TRAMETINIB [Suspect]
     Active Substance: TRAMETINIB
     Indication: PLASMA CELL MYELOMA
     Dosage: COMBINATIONAL TARGETED THERAPY
     Route: 065
  8. PREDNISONE. [Suspect]
     Active Substance: PREDNISONE
     Indication: PLASMA CELL MYELOMA
     Dosage: UNK, NINE CYCLES OF VMP CHEMOTHERAPY
     Route: 065
  9. TRAMETINIB [Suspect]
     Active Substance: TRAMETINIB
     Indication: TARGETED CANCER THERAPY
  10. DABRAFENIB [Suspect]
     Active Substance: DABRAFENIB
     Indication: PLASMA CELL MYELOMA
     Dosage: 150 MG ,COMBINATIONAL TARGETED THERAPY
     Route: 065
  11. DABRAFENIB [Suspect]
     Active Substance: DABRAFENIB
     Indication: TARGETED CANCER THERAPY

REACTIONS (4)
  - Bacterial sepsis [Unknown]
  - Multiple-drug resistance [Unknown]
  - Neutropenia [Unknown]
  - Drug ineffective [Unknown]
